FAERS Safety Report 8653983 (Version 2)
Quarter: 2012Q4

REPORT INFORMATION
  Report Type: Report from Study
  Country: FR (occurrence: FR)
  Receive Date: 20120709
  Receipt Date: 20121010
  Transmission Date: 20130627
  Serious: Yes (Hospitalization)
  Sender: FDA-Public Use
  Company Number: FR-UCBSA-060810

PATIENT
  Age: 63 Year
  Sex: Male
  Weight: 96 kg

DRUGS (11)
  1. CIMZIA [Suspect]
     Indication: RHEUMATOID ARTHRITIS
     Route: 058
     Dates: start: 2012, end: 20120502
  2. CIMZIA [Suspect]
     Indication: RHEUMATOID ARTHRITIS
     Route: 058
     Dates: start: 20120302, end: 2012
  3. METOJECT [Suspect]
     Indication: RHEUMATOID ARTHRITIS
     Route: 058
     Dates: start: 2008, end: 20120430
  4. ALLOPURINOL [Concomitant]
     Indication: HYPERURICAEMIA
     Route: 048
     Dates: start: 20120115
  5. SPECIAFOLDINE [Concomitant]
     Indication: PROPHYLAXIS
     Route: 048
     Dates: start: 2008
  6. ACTONEL [Concomitant]
     Indication: PROPHYLAXIS
     Route: 048
     Dates: start: 201201
  7. CORTANCYL [Concomitant]
     Indication: RHEUMATOID ARTHRITIS
     Route: 048
     Dates: start: 2001
  8. INEXIUM [Concomitant]
     Indication: PROPHYLAXIS
     Route: 048
     Dates: start: 2008
  9. KENZEN [Concomitant]
     Indication: HYPERTENSION
     Route: 048
     Dates: start: 2005
  10. IXPRIM [Concomitant]
     Indication: PAIN
     Dosage: 37.5MG/325 MG(TRAMADOL+PARACETAMOL),1 TAB
     Route: 048
     Dates: start: 2008
  11. PROPANOLOL [Concomitant]
     Indication: HYPERTENSION
     Route: 048
     Dates: start: 2005

REACTIONS (2)
  - Dyspnoea exertional [Recovered/Resolved]
  - Cough [Recovered/Resolved]
